FAERS Safety Report 25200237 (Version 1)
Quarter: 2025Q2

REPORT INFORMATION
  Report Type: Spontaneous
  Country: US (occurrence: US)
  Receive Date: 20250415
  Receipt Date: 20250415
  Transmission Date: 20250716
  Serious: No
  Sender: SANOFI AVENTIS
  Company Number: US-SA-2025SA107195

PATIENT
  Sex: Male

DRUGS (13)
  1. KEVZARA [Suspect]
     Active Substance: SARILUMAB
     Indication: Rheumatoid arthritis
     Dosage: 200 MG, QOW
     Route: 058
     Dates: end: 202504
  2. EZETIMIBE [Concomitant]
     Active Substance: EZETIMIBE
  3. HYDROCHLOROTHIAZIDE [Concomitant]
     Active Substance: HYDROCHLOROTHIAZIDE
  4. HYDROXYCHLOROQUINE SULFATE [Concomitant]
     Active Substance: HYDROXYCHLOROQUINE SULFATE
  5. ISOSORBIDE [Concomitant]
     Active Substance: ISOSORBIDE
  6. LIPITOR [Concomitant]
     Active Substance: ATORVASTATIN CALCIUM
  7. LOSARTAN POTASSIUM [Concomitant]
     Active Substance: LOSARTAN POTASSIUM
  8. NADOLOL [Concomitant]
     Active Substance: NADOLOL
  9. NITROGLYCERIN [Concomitant]
     Active Substance: NITROGLYCERIN
  10. PLAVIX [Concomitant]
     Active Substance: CLOPIDOGREL BISULFATE
  11. PREDNISONE [Concomitant]
     Active Substance: PREDNISONE
  12. DOXYCYCLINE [Concomitant]
     Active Substance: DOXYCYCLINE
  13. SULFASALAZINE DELAYED-RELEASE [Concomitant]
     Active Substance: SULFASALAZINE

REACTIONS (1)
  - Fungal infection [Unknown]
